FAERS Safety Report 24436016 (Version 1)
Quarter: 2024Q4

REPORT INFORMATION
  Report Type: Spontaneous
  Country: US (occurrence: US)
  Receive Date: 20241015
  Receipt Date: 20241015
  Transmission Date: 20250114
  Serious: No
  Sender: AMGEN
  Company Number: US-AMGEN-USASP2024202824

PATIENT

DRUGS (1)
  1. TEPEZZA [Suspect]
     Active Substance: TEPROTUMUMAB-TRBW
     Indication: Endocrine ophthalmopathy
     Dosage: UNK
     Route: 065

REACTIONS (4)
  - Alopecia [Recovered/Resolved]
  - Muscle spasms [Recovered/Resolved]
  - Nail disorder [Recovered/Resolved]
  - Amenorrhoea [Recovered/Resolved]
